FAERS Safety Report 16782483 (Version 1)
Quarter: 2019Q4

REPORT INFORMATION
  Report Type: Spontaneous
  Country: US (occurrence: US)
  Receive Date: 20190906
  Receipt Date: 20190906
  Transmission Date: 20200122
  Serious: No
  Sender: FDA-Public Use
  Company Number: None

PATIENT
  Age: 61 Year
  Sex: Female
  Weight: 69.75 kg

DRUGS (1)
  1. FLUTICASONE PROPIONATE. [Suspect]
     Active Substance: FLUTICASONE PROPIONATE
     Indication: SEASONAL ALLERGY
     Dosage: ?          OTHER STRENGTH:MCG;QUANTITY:2 SPRAY(S);OTHER ROUTE:NOSE?
     Dates: start: 20161231, end: 20180531

REACTIONS (12)
  - Laryngitis [None]
  - Nephrolithiasis [None]
  - Product contamination physical [None]
  - Dysphagia [None]
  - Gastrooesophageal reflux disease [None]
  - Headache [None]
  - Recalled product administered [None]
  - Foreign body in respiratory tract [None]
  - Epistaxis [None]
  - Nasal ulcer [None]
  - Deafness unilateral [None]
  - Blood pressure increased [None]

NARRATIVE: CASE EVENT DATE: 20170329
